FAERS Safety Report 7504466-X (Version None)
Quarter: 2011Q2

REPORT INFORMATION
  Report Type: 
  Country: None (occurrence: None)
  Receive Date: 20110525
  Receipt Date: 20100124
  Transmission Date: 20111010
  Serious: Yes (Death, Other)
  Sender: FDA-Public Use
  Company Number: US-BAYER-201012056NA

PATIENT
  Age: 78 Year
  Sex: Male
  Weight: 113.38 kg

DRUGS (20)
  1. TRASYLOL [Suspect]
     Indication: CORONARY ARTERY BYPASS
     Dosage: UNK
     Route: 042
     Dates: start: 20051103
  2. BACTRIM [Concomitant]
     Dosage: 2 DAILY
     Dates: start: 20051001
  3. DOXYCYCLINE [Concomitant]
     Dosage: 2 DAILY
     Dates: start: 20051001
  4. AMICAR [Concomitant]
     Dosage: UNK
     Dates: start: 20051105
  5. MICARDIS [Concomitant]
     Dosage: 80 MG, QD
  6. CYMBALTA [Concomitant]
     Dosage: 60 MG, BID
  7. ACETYLSALICYLIC ACID SRT [Concomitant]
     Dosage: 81 MG, QD
  8. LIPITOR [Concomitant]
     Dosage: 20 MG, QD
     Route: 048
  9. PROSCAR [Concomitant]
     Dosage: 5 MG, QD
  10. CARBIDOPA + LEVODOPA [Concomitant]
     Dosage: 25/100 TWO/DAY FOR 7 DAYS
  11. SINEMET [Concomitant]
     Dosage: 25/100- 2 4 TIMES DAILY
     Route: 048
  12. AMICAR [Concomitant]
     Indication: SURGERY
     Dosage: UNK
     Dates: start: 20051103
  13. MAXZIDE [Concomitant]
     Dosage: 75/50, ONCE A DAY
  14. CARBIDOPA + LEVODOPA [Concomitant]
     Dosage: 4/DAY FOR 7 DAYS
  15. AMICAR [Concomitant]
     Dosage: UNK
     Dates: start: 20051104
  16. HYDROCODONE BITARTRATE [Concomitant]
     Dosage: UNK UNK, PRN
  17. ZOCOR [Concomitant]
     Dosage: 20 MG, QD
  18. TOPROL-XL [Concomitant]
     Dosage: 25 MG, QD
  19. CARBIDOPA + LEVODOPA [Concomitant]
     Dosage: 3/DAY FOR 7 DAYS
  20. TOPROL-XL [Concomitant]
     Dosage: O30 MG, QD
     Route: 048

REACTIONS (14)
  - RENAL FAILURE [None]
  - EMOTIONAL DISTRESS [None]
  - UNEVALUABLE EVENT [None]
  - RENAL INJURY [None]
  - DEATH [None]
  - ANHEDONIA [None]
  - MYOCARDIAL INFARCTION [None]
  - ANXIETY [None]
  - PAIN [None]
  - INJURY [None]
  - MULTI-ORGAN FAILURE [None]
  - RENAL IMPAIRMENT [None]
  - STRESS [None]
  - FEAR [None]
